FAERS Safety Report 5573841-5 (Version None)
Quarter: 2007Q4

REPORT INFORMATION
  Report Type: 
  Country: None (occurrence: None)
  Receive Date: 20071226
  Receipt Date: 20071214
  Transmission Date: 20080405
  Serious: Yes (Life-Threatening, Hospitalization, Disabling, Other)
  Sender: FDA-Public Use
  Company Number: GB-PFIZER INC-2007105620

PATIENT
  Age: 39 Year
  Sex: Female
  Weight: 60 kg

DRUGS (5)
  1. HYDROCORTISONE SODIUM SUCCINATE [Suspect]
     Route: 042
  2. REMICADE [Suspect]
     Route: 042
  3. TINZAPARIN SODIUM [Suspect]
     Route: 058
     Dates: start: 20071114, end: 20071120
  4. ADCAL-D3 [Concomitant]
     Dosage: TEXT:2 DFS
     Route: 048
     Dates: start: 20071114, end: 20071120
  5. AZATHIOPRINE [Concomitant]
     Route: 048
     Dates: start: 20060101, end: 20071120

REACTIONS (1)
  - CEREBRAL HAEMORRHAGE [None]
